FAERS Safety Report 7013565-0 (Version None)
Quarter: 2010Q3

REPORT INFORMATION
  Report Type: 
  Country: None (occurrence: None)
  Receive Date: 20100924
  Receipt Date: 20100914
  Transmission Date: 20110219
  Serious: Yes (Other)
  Sender: FDA-Public Use
  Company Number: US-JNJCH-2010021536

PATIENT
  Age: 42 Year
  Sex: Female

DRUGS (3)
  1. ASPIRIN [Suspect]
     Indication: ASSISTED FERTILISATION
     Dosage: TEXT:81MG DAILY
     Route: 065
  2. ENOXAPARIN SODIUM [Suspect]
     Indication: HYPERCOAGULATION
     Dosage: TEXT:UNSPECIFIED
     Route: 058
  3. CLOMIPHENE CITRATE [Suspect]
     Indication: ASSISTED FERTILISATION
     Dosage: TEXT:UNSPECIFIED
     Route: 065

REACTIONS (3)
  - ABORTION SPONTANEOUS [None]
  - DRUG EXPOSURE DURING PREGNANCY [None]
  - DRUG INEFFECTIVE FOR UNAPPROVED INDICATION [None]
